FAERS Safety Report 24605758 (Version 3)
Quarter: 2024Q4

REPORT INFORMATION
  Report Type: Report from Study
  Country: BR (occurrence: BR)
  Receive Date: 20241111
  Receipt Date: 20241215
  Transmission Date: 20250115
  Serious: Yes (Hospitalization)
  Sender: JOHNSON AND JOHNSON
  Company Number: BR-JNJFOC-20241116409

PATIENT
  Age: 71 Year
  Sex: Male

DRUGS (4)
  1. SPRAVATO [Suspect]
     Active Substance: ESKETAMINE
     Indication: Major depression
     Route: 045
     Dates: start: 20221226
  2. SPRAVATO [Suspect]
     Active Substance: ESKETAMINE
     Dosage: 1 DEVICE
     Route: 045
     Dates: start: 20241030
  3. SPRAVATO [Suspect]
     Active Substance: ESKETAMINE
     Dosage: 1 DEVICE
     Route: 045
     Dates: start: 20241127
  4. SPRAVATO [Suspect]
     Active Substance: ESKETAMINE
     Dosage: 1 DEVICE
     Route: 045
     Dates: start: 20241205

REACTIONS (3)
  - Blood pressure decreased [Unknown]
  - Off label use [Unknown]
  - Off label use [Unknown]

NARRATIVE: CASE EVENT DATE: 20241031
